FAERS Safety Report 9434229 (Version 1)
Quarter: 2013Q3

REPORT INFORMATION
  Report Type: Spontaneous
  Country: US (occurrence: None)
  Receive Date: 20130730
  Receipt Date: 20130730
  Transmission Date: 20140515
  Serious: Yes (Other)
  Sender: FDA-Public Use
  Company Number: None

PATIENT
  Age: 68 Year
  Sex: Female
  Weight: 109.77 kg

DRUGS (12)
  1. CREON [Suspect]
     Indication: PANCREATIC INSUFFICIENCY
     Dosage: 1 CAPSULE  3 TIMES A DAY  PO
     Route: 048
     Dates: start: 20130725, end: 20130729
  2. GLYBURIDE [Concomitant]
  3. LASI [Concomitant]
  4. NORVASC [Concomitant]
  5. PRAVASTATIN [Concomitant]
  6. SINGULAIR [Concomitant]
  7. PROAIR [Concomitant]
  8. LOPRESSOR [Concomitant]
  9. ALBUTEROL [Concomitant]
  10. SPIRIVA [Concomitant]
  11. XANAX [Concomitant]
  12. LEXAPRO [Concomitant]

REACTIONS (11)
  - Headache [None]
  - Epistaxis [None]
  - Cough [None]
  - Incontinence [None]
  - Oral pain [None]
  - Musculoskeletal stiffness [None]
  - Blood pressure increased [None]
  - Affect lability [None]
  - Crying [None]
  - Abdominal distension [None]
  - Salivary hypersecretion [None]
